FAERS Safety Report 23466473 (Version 8)
Quarter: 2025Q4

REPORT INFORMATION
  Report Type: Spontaneous
  Country: PK (occurrence: PK)
  Receive Date: 20240201
  Receipt Date: 20251008
  Transmission Date: 20260119
  Serious: Yes (Other)
  Sender: PFIZER
  Company Number: PK-PFIZER INC-PV202300157615

PATIENT
  Age: 28 Year
  Sex: Male
  Weight: 86 kg

DRUGS (11)
  1. IXIFI [Suspect]
     Active Substance: INFLIXIMAB-QBTX
     Indication: Spondyloarthropathy
     Dosage: 3MG/KG (260MG) THEN 5MG/KG (430 MG) 0, 2, 6 AND 8 WEEKLY
     Dates: start: 202309
  2. IXIFI [Suspect]
     Active Substance: INFLIXIMAB-QBTX
     Indication: Psoriatic arthropathy
     Dosage: 3MG/KG (260MG) THEN 5MG/KG (430 MG) 0, 2, 6 AND 8 WEEKLY
     Dates: start: 20231009
  3. IXIFI [Suspect]
     Active Substance: INFLIXIMAB-QBTX
     Dosage: UNK
     Dates: end: 202405
  4. IXIFI [Suspect]
     Active Substance: INFLIXIMAB-QBTX
     Dosage: 300 MG
     Route: 042
  5. IXIFI [Suspect]
     Active Substance: INFLIXIMAB-QBTX
     Dosage: 300 MG
     Route: 042
     Dates: start: 20241111
  6. IXIFI [Suspect]
     Active Substance: INFLIXIMAB-QBTX
     Dosage: 279 MG, MONTHLY
     Route: 042
  7. FOLIC ACID [Concomitant]
     Active Substance: FOLIC ACID
     Dosage: 1 DF, 2X/WEEK (1XTABLETS.TWO TIMES A WEEK ON TUESDAY)
  8. KETOPROFEN [Concomitant]
     Active Substance: KETOPROFEN
     Indication: Pain
     Dosage: 1 DF, 1X/DAY (1 X TABLETS. ONCE A DAY, AFTER MEAL WHEN REQUIRED)
  9. METHOTREXATE [Concomitant]
     Active Substance: METHOTREXATE
     Dosage: 1 DF, WEEKLY (1 TABLET ONCE A WEEK AFTER MEAL (HRS AFTER BREAKFAST) EVERY TUESDAY)
     Dates: end: 202405
  10. SUNNY D [Concomitant]
     Dosage: 1 DF (1 X CAPSULES, ONCE IN TWO MONTHS CONTINUE)
  11. NUBEROL [Concomitant]
     Dosage: 1 DF (0+0+1+0. AFTER MEAL 1 TAB IN EVENING ONCE IN TWO MONTHS)

REACTIONS (14)
  - Body mass index increased [Not Recovered/Not Resolved]
  - Hypertransaminasaemia [Recovering/Resolving]
  - Condition aggravated [Not Recovered/Not Resolved]
  - Therapeutic response shortened [Unknown]
  - Therapeutic product effect incomplete [Unknown]
  - Pain [Unknown]
  - Fatigue [Unknown]
  - Musculoskeletal stiffness [Unknown]
  - Enthesopathy [Unknown]
  - Abdominal discomfort [Unknown]
  - Liver disorder [Unknown]
  - Hepatic steatosis [Unknown]
  - Off label use [Unknown]
  - Off label use [Unknown]

NARRATIVE: CASE EVENT DATE: 20240117
